FAERS Safety Report 5044990-5 (Version None)
Quarter: 2006Q3

REPORT INFORMATION
  Report Type: 
  Country: None (occurrence: None)
  Receive Date: 20060705
  Receipt Date: 20060614
  Transmission Date: 20061208
  Serious: Yes (Hospitalization)
  Sender: FDA-Public Use
  Company Number: US_0403101185

PATIENT
  Age: 1 Day

DRUGS (3)
  1. ILETIN [Suspect]
     Dosage: TRANSPLACENTAL
     Route: 064
     Dates: start: 19930101, end: 19940101
  2. ILETIN [Suspect]
     Dates: start: 19930101, end: 19940101
  3. PRENATAL VITAMINS [Concomitant]

REACTIONS (4)
  - DRUG EXPOSURE DURING PREGNANCY [None]
  - DRUG EXPOSURE VIA BREAST MILK [None]
  - JAUNDICE NEONATAL [None]
  - PREMATURE BABY [None]
